FAERS Safety Report 13073325 (Version 2)
Quarter: 2017Q1

REPORT INFORMATION
  Report Type: Spontaneous
  Country: GB (occurrence: GB)
  Receive Date: 20161229
  Receipt Date: 20170125
  Transmission Date: 20170428
  Serious: Yes (Hospitalization)
  Sender: FDA-Public Use
  Company Number: GB-SA-2016SA233951

PATIENT
  Age: 55 Year
  Sex: Male

DRUGS (5)
  1. RIFAMPICIN [Suspect]
     Active Substance: RIFAMPIN
     Indication: TUBERCULOSIS
     Route: 065
  2. PYRAZINAMIDE. [Suspect]
     Active Substance: PYRAZINAMIDE
     Indication: TUBERCULOSIS
     Route: 065
  3. ISONIAZID. [Suspect]
     Active Substance: ISONIAZID
     Indication: TUBERCULOSIS
     Route: 065
  4. METFORMIN [Concomitant]
     Active Substance: METFORMIN HYDROCHLORIDE
     Indication: TYPE 2 DIABETES MELLITUS
  5. GLICLAZIDE [Concomitant]
     Active Substance: GLICLAZIDE
     Indication: TYPE 2 DIABETES MELLITUS

REACTIONS (27)
  - Addison^s disease [Recovered/Resolved]
  - Abdominal pain [Recovered/Resolved]
  - Blood potassium increased [Recovered/Resolved]
  - Blood pressure decreased [Recovered/Resolved]
  - Blood creatinine increased [Recovered/Resolved]
  - Heart rate increased [Recovered/Resolved]
  - Blood sodium decreased [Recovered/Resolved]
  - Blood bilirubin increased [Recovered/Resolved]
  - Blood alkaline phosphatase increased [Recovered/Resolved]
  - Somnolence [Recovered/Resolved]
  - Malaise [Recovered/Resolved]
  - Hepatitis [Recovered/Resolved]
  - Dehydration [Recovered/Resolved]
  - Adrenomegaly [Recovered/Resolved]
  - Blood cortisol decreased [Recovered/Resolved]
  - Blood urea increased [Recovered/Resolved]
  - Adrenocortical insufficiency acute [Recovered/Resolved]
  - Vomiting [Recovered/Resolved]
  - Alanine aminotransferase increased [Recovered/Resolved]
  - Hypotension [Recovered/Resolved]
  - Adrenal insufficiency [Recovered/Resolved]
  - Respiratory distress [Recovered/Resolved]
  - Renal injury [Recovered/Resolved]
  - Nausea [Recovered/Resolved]
  - Crepitations [Recovered/Resolved]
  - Blood albumin decreased [Recovered/Resolved]
  - Gamma-glutamyltransferase increased [Recovered/Resolved]
